FAERS Safety Report 13315380 (Version 1)
Quarter: 2017Q1

REPORT INFORMATION
  Report Type: Spontaneous
  Country: US (occurrence: US)
  Receive Date: 20170309
  Receipt Date: 20170309
  Transmission Date: 20170428
  Serious: No
  Sender: FDA-Public Use
  Company Number: US-BAUSCH-BL-2016-010894

PATIENT
  Age: 60 Year
  Sex: Female
  Weight: 136.2 kg

DRUGS (1)
  1. EDECRIN [Suspect]
     Active Substance: ETHACRYNIC ACID
     Indication: OEDEMA DUE TO CARDIAC DISEASE
     Route: 048
     Dates: start: 201512

REACTIONS (2)
  - Vomiting [Not Recovered/Not Resolved]
  - Nausea [Not Recovered/Not Resolved]

NARRATIVE: CASE EVENT DATE: 201512
